FAERS Safety Report 20939774 (Version 1)
Quarter: 2022Q2

REPORT INFORMATION
  Report Type: Spontaneous
  Country: US (occurrence: None)
  Receive Date: 20220609
  Receipt Date: 20220609
  Transmission Date: 20220720
  Serious: No
  Sender: FDA-Public Use
  Company Number: None

PATIENT
  Age: 73 Year
  Sex: Male
  Weight: 83.91 kg

DRUGS (1)
  1. SKYRIZI [Suspect]
     Active Substance: RISANKIZUMAB-RZAA
     Indication: Psoriasis
     Dosage: INJECTE 150MG (1 PEN) SUBCUTANEOUSLY EVERY 12  WEEKS   AS DIRECTED?
     Route: 058
     Dates: start: 202107

REACTIONS (1)
  - Neoplasm malignant [None]
